FAERS Safety Report 23525051 (Version 1)
Quarter: 2024Q1

REPORT INFORMATION
  Report Type: Spontaneous
  Country: FR (occurrence: FR)
  Receive Date: 20240215
  Receipt Date: 20240215
  Transmission Date: 20240409
  Serious: Yes (Hospitalization)
  Sender: FDA-Public Use
  Company Number: None

PATIENT
  Age: 75 Year
  Sex: Female

DRUGS (7)
  1. FLUOROURACIL [Suspect]
     Active Substance: FLUOROURACIL
     Indication: Pancreatic carcinoma metastatic
     Dosage: TIME INTERVAL: 1 TOTAL: 1700MG C2
     Route: 042
     Dates: start: 20231116, end: 20231116
  2. FLUOROURACIL [Suspect]
     Active Substance: FLUOROURACIL
     Indication: Pancreatic carcinoma metastatic
     Dosage: TIME INTERVAL: 1 TOTAL: BOLUS 575MG
     Route: 065
     Dates: start: 20231115, end: 20231115
  3. GEMCITABINE HYDROCHLORIDE [Concomitant]
     Active Substance: GEMCITABINE HYDROCHLORIDE
     Indication: Pancreatic carcinoma metastatic
     Dosage: TIME INTERVAL: 1 TOTAL: C2
     Route: 042
     Dates: start: 20231010, end: 20231010
  4. INNOHEP [Suspect]
     Active Substance: TINZAPARIN SODIUM
     Indication: Pulmonary embolism
     Route: 065
     Dates: start: 20230706, end: 20231118
  5. PACLITAXEL [Concomitant]
     Active Substance: PACLITAXEL
     Indication: Pancreatic carcinoma metastatic
     Dosage: TIME INTERVAL: 1 TOTAL: C2
     Route: 042
     Dates: start: 20231010, end: 20231010
  6. OXALIPLATIN [Concomitant]
     Active Substance: OXALIPLATIN
     Indication: Pancreatic carcinoma metastatic
     Dosage: TIME INTERVAL: 1 TOTAL: C2
     Route: 042
     Dates: start: 20231115, end: 20231115
  7. IRINOTECAN [Concomitant]
     Active Substance: IRINOTECAN
     Indication: Pancreatic carcinoma metastatic
     Dosage: TIME INTERVAL: 1 TOTAL: C2
     Route: 042
     Dates: start: 20231115, end: 20231115

REACTIONS (1)
  - Rectal haemorrhage [Recovered/Resolved]

NARRATIVE: CASE EVENT DATE: 20231118
